FAERS Safety Report 7493367-1 (Version None)
Quarter: 2011Q2

REPORT INFORMATION
  Report Type: 
  Country: None (occurrence: None)
  Receive Date: 20110520
  Receipt Date: 20110506
  Transmission Date: 20111010
  Serious: Yes (Hospitalization)
  Sender: FDA-Public Use
  Company Number: US-MYLANLABS-2011S1009412

PATIENT
  Age: 45 Year
  Sex: Female

DRUGS (9)
  1. INSULIN [Concomitant]
     Indication: TYPE 2 DIABETES MELLITUS
     Dosage: SLIDING-SCALE DOSED REGULAR INSULIN
     Route: 065
  2. METHIMAZOLE [Concomitant]
     Indication: HYPERTHYROIDISM
     Dosage: 10 MG TWICE DAILY
     Route: 065
  3. ATENOLOL [Concomitant]
     Indication: HYPERTENSION
     Dosage: 25 MG/DAY
     Route: 065
  4. ALENDRONIC ACID [Concomitant]
     Indication: OSTEOPOROSIS
     Dosage: 70MG ONCE WEEKLY
     Route: 065
  5. PANTOPRAZOLE [Concomitant]
     Indication: GASTROOESOPHAGEAL REFLUX DISEASE
     Dosage: 40 MG/DAY
     Route: 065
  6. FEXOFENADINE [Concomitant]
     Indication: SEASONAL ALLERGY
     Dosage: 60 MG TWICE DAILY
     Route: 065
  7. LEVETIRACETAM [Suspect]
     Indication: PARTIAL SEIZURES
     Dosage: 500 MG TWICE DAILY
     Route: 065
  8. COMBIVENT [Concomitant]
     Indication: INTERSTITIAL LUNG DISEASE
     Dosage: 2 INHALATIONS EVERY 6 HOURS AS NEEDED
  9. DEXTROPROPOXYPHENE HYDROCHLOR. W/PARACETAMOL [Concomitant]
     Indication: PAIN
     Dosage: 100MG/650MG EVERY 6-8 HOURS AS NEEDED
     Route: 065

REACTIONS (1)
  - ACUTE GENERALISED EXANTHEMATOUS PUSTULOSIS [None]
